FAERS Safety Report 5814369-4 (Version None)
Quarter: 2008Q3

REPORT INFORMATION
  Report Type: 
  Country: None (occurrence: None)
  Receive Date: 20080718
  Receipt Date: 20080715
  Transmission Date: 20090109
  Serious: Yes (Life-Threatening)
  Sender: FDA-Public Use
  Company Number: US-WYE-H05055008

PATIENT
  Sex: Male
  Weight: 90.8 kg

DRUGS (1)
  1. PRISTIQ [Suspect]
     Indication: MAJOR DEPRESSION
     Dosage: STARTER PACK - ^5 MG^ DAILY
     Route: 048
     Dates: start: 20080605

REACTIONS (1)
  - SUICIDAL IDEATION [None]
